FAERS Safety Report 6517650-9 (Version None)
Quarter: 2009Q4

REPORT INFORMATION
  Report Type: 
  Country: None (occurrence: None)
  Receive Date: 20091224
  Receipt Date: 20091223
  Transmission Date: 20100525
  Serious: Yes (Death)
  Sender: FDA-Public Use
  Company Number: PHHY2009US55538

PATIENT
  Sex: Female

DRUGS (4)
  1. EXJADE [Suspect]
     Indication: LYMPHOMA
     Dosage: 1500 MG/DAY
     Route: 048
     Dates: start: 20090811
  2. EXJADE [Suspect]
     Indication: TRANSFUSION
  3. BLOOD TRANSFUSION, AUXILIARY PRODUCTS [Concomitant]
  4. PLATELETS [Concomitant]

REACTIONS (1)
  - DISEASE PROGRESSION [None]
